FAERS Safety Report 20503844 (Version 1)
Quarter: 2022Q1

REPORT INFORMATION
  Report Type: Spontaneous
  Country: US (occurrence: None)
  Receive Date: 20220221
  Receipt Date: 20220221
  Transmission Date: 20220423
  Serious: Yes (Hospitalization)
  Sender: FDA-Public Use
  Company Number: None

PATIENT
  Age: 38 Year
  Sex: Female
  Weight: 72 kg

DRUGS (2)
  1. LEVOFLOXACIN [Suspect]
     Active Substance: LEVOFLOXACIN
     Indication: Skin infection
     Dosage: OTHER QUANTITY : 5 TABLET(S);?FREQUENCY : DAILY;?
     Route: 048
     Dates: start: 20220218, end: 20220218
  2. LEVOFLOXACIN [Suspect]
     Active Substance: LEVOFLOXACIN
     Indication: Cellulitis

REACTIONS (9)
  - Dizziness [None]
  - Headache [None]
  - Nausea [None]
  - Anxiety [None]
  - Depression [None]
  - Confusional state [None]
  - Psychotic disorder [None]
  - Hallucination, auditory [None]
  - Vomiting [None]

NARRATIVE: CASE EVENT DATE: 20220218
